FAERS Safety Report 5570555-2 (Version None)
Quarter: 2007Q4

REPORT INFORMATION
  Report Type: 
  Country: None (occurrence: None)
  Receive Date: 20071219
  Receipt Date: 20071204
  Transmission Date: 20080405
  Serious: Yes (Hospitalization)
  Sender: FDA-Public Use
  Company Number: 2007BI025709

PATIENT
  Age: 38 Year
  Sex: Female

DRUGS (1)
  1. AVONEX [Suspect]
     Indication: MULTIPLE SCLEROSIS
     Dosage: IM
     Route: 030
     Dates: start: 20070424, end: 20071104

REACTIONS (8)
  - DEPRESSION [None]
  - DYSPNOEA [None]
  - HEMIPLEGIA [None]
  - INFLUENZA LIKE ILLNESS [None]
  - MOOD ALTERED [None]
  - MULTIPLE SCLEROSIS [None]
  - PHARYNGEAL OEDEMA [None]
  - SWOLLEN TONGUE [None]
